FAERS Safety Report 5256744-5 (Version None)
Quarter: 2007Q1

REPORT INFORMATION
  Report Type: 
  Country: None (occurrence: None)
  Receive Date: 20070306
  Receipt Date: 20070222
  Transmission Date: 20070707
  Serious: Yes (Other)
  Sender: FDA-Public Use
  Company Number: JP-PFIZER INC-2007014911

PATIENT
  Age: 59 Year
  Sex: Male

DRUGS (2)
  1. GABAPEN [Suspect]
     Indication: PARTIAL SEIZURES
     Route: 048
  2. DEPAKENE [Concomitant]
     Route: 048

REACTIONS (1)
  - MEGACOLON [None]
